FAERS Safety Report 4764109-5 (Version None)
Quarter: 2005Q3

REPORT INFORMATION
  Report Type: 
  Country: None (occurrence: None)
  Receive Date: 20050908
  Receipt Date: 20050830
  Transmission Date: 20060218
  Serious: Yes (Hospitalization)
  Sender: FDA-Public Use
  Company Number: TH-MERCK-0509THA00002

PATIENT
  Age: 78 Year
  Sex: Female

DRUGS (9)
  1. INVANZ [Suspect]
     Indication: DIABETIC FOOT
     Route: 042
     Dates: start: 20050826, end: 20050826
  2. INVANZ [Suspect]
     Route: 042
     Dates: start: 20050827
  3. CLOPIDOGREL BISULFATE [Concomitant]
     Route: 048
     Dates: start: 20050601
  4. ASPIRIN [Concomitant]
     Route: 048
     Dates: start: 20050601
  5. CILOSTAZOL [Concomitant]
     Route: 048
     Dates: start: 20050301
  6. PRAZOSIN HYDROCHLORIDE [Concomitant]
     Indication: HYPERTENSION
     Route: 048
     Dates: start: 20050101
  7. CAPTOPRIL [Concomitant]
     Indication: HYPERTENSION
     Route: 048
     Dates: start: 20050101
  8. INSULIN [Concomitant]
     Indication: DIABETES MELLITUS
     Route: 058
     Dates: start: 20050101
  9. AMOXICILLIN AND CLAVULANATE POTASSIUM [Concomitant]
     Indication: DIABETIC FOOT
     Route: 048
     Dates: start: 20050801, end: 20050801

REACTIONS (4)
  - CONFUSIONAL STATE [None]
  - DYSURIA [None]
  - INSOMNIA [None]
  - LOSS OF CONSCIOUSNESS [None]
